FAERS Safety Report 4284960-8 (Version None)
Quarter: 2004Q1

REPORT INFORMATION
  Report Type: 
  Country: None (occurrence: None)
  Receive Date: 20040202
  Receipt Date: 20040120
  Transmission Date: 20041129
  Serious: Yes (Disabling)
  Sender: FDA-Public Use
  Company Number: 2002103612US

PATIENT
  Sex: Male

DRUGS (1)
  1. LOMOTIL [Suspect]
     Indication: IRRITABLE BOWEL SYNDROME
     Dosage: 2 MG, PRN (BID-TID), ORAL
     Route: 048
     Dates: start: 19970101, end: 20020311

REACTIONS (6)
  - BENIGN PROSTATIC HYPERPLASIA [None]
  - CONDITION AGGRAVATED [None]
  - EYE PAIN [None]
  - HEADACHE [None]
  - OPHTHALMOPLEGIA [None]
  - VISION BLURRED [None]
